FAERS Safety Report 5728494-X (Version None)
Quarter: 2008Q2

REPORT INFORMATION
  Report Type: 
  Country: None (occurrence: None)
  Receive Date: 20080506
  Receipt Date: 20080425
  Transmission Date: 20081010
  Serious: Yes (Other)
  Sender: FDA-Public Use
  Company Number: US-ROCHE-561210

PATIENT
  Age: 68 Year
  Sex: Female

DRUGS (5)
  1. BONIVA [Suspect]
     Indication: OSTEOPOROSIS
     Route: 065
     Dates: start: 20061201
  2. AVENA [Concomitant]
     Dosage: DRUG REPORTED AS AVAVA.
  3. PLAQUENIL [Concomitant]
  4. METHOTREXATE [Concomitant]
  5. SYNTHROID [Concomitant]

REACTIONS (1)
  - PANCREATITIS [None]
